FAERS Safety Report 7769539-5 (Version None)
Quarter: 2011Q3

REPORT INFORMATION
  Report Type: 
  Country: None (occurrence: None)
  Receive Date: 20110922
  Receipt Date: 20100803
  Transmission Date: 20111222
  Serious: No
  Sender: FDA-Public Use
  Company Number: US-ASTRAZENECA-2010SE32295

PATIENT
  Age: 38 Year
  Sex: Male
  Weight: 86.2 kg

DRUGS (3)
  1. LORAZEPAM [Concomitant]
  2. PROZAC [Concomitant]
  3. SEROQUEL [Suspect]
     Indication: BIPOLAR DISORDER
     Route: 048
     Dates: start: 20090101

REACTIONS (7)
  - RESTLESS LEGS SYNDROME [None]
  - BLOOD PRESSURE INCREASED [None]
  - BLOOD GLUCOSE INCREASED [None]
  - HIGH DENSITY LIPOPROTEIN DECREASED [None]
  - BLOOD TRIGLYCERIDES INCREASED [None]
  - FOOD CRAVING [None]
  - BLOOD CHOLESTEROL INCREASED [None]
